FAERS Safety Report 9153672 (Version 1)
Quarter: 2013Q1

REPORT INFORMATION
  Report Type: Spontaneous
  Country: DK (occurrence: None)
  Receive Date: 20130222
  Receipt Date: 20130222
  Transmission Date: 20140127
  Serious: Yes (Other)
  Sender: FDA-Public Use
  Company Number: 2013MA001243

PATIENT
  Age: 52 Year
  Sex: Female

DRUGS (8)
  1. MIRTAZAPINE [Suspect]
  2. PEGINTERFERON ALFA-2B [Suspect]
     Indication: HEPATITIS C
     Route: 058
     Dates: start: 20121001
  3. TELAPREVIR [Suspect]
     Indication: HEPATITIS C
     Route: 048
     Dates: start: 20121001
  4. RIBAVIRIN (RIBAVIRIN) [Suspect]
     Indication: HEPATITIS C
     Route: 048
     Dates: start: 20121001
  5. EMTRICITABINE [Concomitant]
  6. RILPIVIRINE HYDROCHLORIDE [Concomitant]
  7. TENOFOVIR DISOPROXIL FUMARATE [Concomitant]
  8. LAMIVUDINE [Concomitant]

REACTIONS (12)
  - Off label use [None]
  - Fatigue [None]
  - Haemoglobin decreased [None]
  - Musculoskeletal pain [None]
  - Insomnia [None]
  - Skin discolouration [None]
  - Hallucination [None]
  - Confusional state [None]
  - Disorientation [None]
  - Abnormal dreams [None]
  - Vomiting [None]
  - Depressed mood [None]
